FAERS Safety Report 15476838 (Version 2)
Quarter: 2018Q4

REPORT INFORMATION
  Report Type: Spontaneous
  Country: JP (occurrence: JP)
  Receive Date: 20181009
  Receipt Date: 20181031
  Transmission Date: 20190205
  Serious: Yes (Death)
  Sender: FDA-Public Use
  Company Number: JP-AMGEN-JPNSP2018054346

PATIENT
  Age: 3 Month
  Sex: Male
  Weight: 5.1 kg

DRUGS (5)
  1. ENBREL [Suspect]
     Active Substance: ETANERCEPT
     Dosage: 1.7 MG, 2X/WEEK
     Route: 058
     Dates: start: 20180412, end: 20180427
  2. LANSOPRAZOLE. [Concomitant]
     Active Substance: LANSOPRAZOLE
     Dosage: 2.5 MG, 1X/DAY
     Route: 048
     Dates: start: 20180412, end: 20180514
  3. PREDONINE [PREDNISOLONE ACETATE] [Concomitant]
     Indication: JUVENILE IDIOPATHIC ARTHRITIS
     Dosage: 1.666 MG, 3X/DAY
     Route: 048
     Dates: start: 20180412, end: 20180514
  4. TAZOPIPE [Concomitant]
     Active Substance: PIPERACILLIN SODIUM\TAZOBACTAM SODIUM
     Indication: FEBRILE NEUTROPENIA
     Dosage: 0.2 DF, 3X/DAY
     Route: 041
     Dates: start: 20180422, end: 20180514
  5. ENBREL [Suspect]
     Active Substance: ETANERCEPT
     Indication: JUVENILE IDIOPATHIC ARTHRITIS
     Dosage: 0.4 MG/KG, UNK
     Route: 065

REACTIONS (3)
  - Death [Fatal]
  - Product use in unapproved indication [Unknown]
  - Product use issue [Unknown]
